FAERS Safety Report 10750430 (Version 5)
Quarter: 2015Q2

REPORT INFORMATION
  Report Type: Report from Study
  Country: IN (occurrence: IN)
  Receive Date: 20150130
  Receipt Date: 20150420
  Transmission Date: 20150821
  Serious: Yes (Hospitalization, Other)
  Sender: FDA-Public Use
  Company Number: PHHO2015IN001259

PATIENT
  Age: 53 Year
  Sex: Female
  Weight: 70 kg

DRUGS (9)
  1. ZAPIZ [Concomitant]
     Indication: HYPERTENSION
     Dosage: 0.5 MG, QHS
     Route: 065
     Dates: start: 20141120
  2. PREDNISONE. [Concomitant]
     Active Substance: PREDNISONE
     Indication: NON-HODGKIN^S LYMPHOMA
     Dosage: 100 MG, TABLET (1-5)
     Route: 048
     Dates: start: 20141128
  3. TELVAS [Concomitant]
     Indication: HYPERTENSION
     Dosage: 40 MG, OD
     Route: 048
     Dates: start: 20141120
  4. DYTOR [Concomitant]
     Active Substance: TORSEMIDE
     Indication: HYPERTENSION
     Dosage: 10 MG AT AM AND PM
     Route: 065
     Dates: start: 20141120
  5. VINCRISTINE [Concomitant]
     Active Substance: VINCRISTINE
     Indication: NON-HODGKIN^S LYMPHOMA
     Dosage: 1.4 MG/M2, UNK
     Route: 042
     Dates: start: 20141128
  6. A-Z [Concomitant]
     Indication: VITAMIN SUPPLEMENTATION
     Dosage: 1 CAP, OD
     Route: 065
     Dates: start: 20141128
  7. PAN D [Concomitant]
     Indication: PROPHYLAXIS
     Dosage: 40 MG, OD
     Route: 065
     Dates: start: 20141128
  8. CYCLOPHOSPHAMIDE. [Concomitant]
     Active Substance: CYCLOPHOSPHAMIDE
     Indication: NON-HODGKIN^S LYMPHOMA
     Dosage: 750 MG/M2, UNK
     Route: 042
     Dates: start: 20141128
  9. GP2013 [Suspect]
     Active Substance: RITUXIMAB
     Indication: NON-HODGKIN^S LYMPHOMA
     Dosage: UNK
     Route: 042
     Dates: start: 20141128

REACTIONS (1)
  - Spinal pain [Recovered/Resolved]

NARRATIVE: CASE EVENT DATE: 20150120
